FAERS Safety Report 12056808 (Version 1)
Quarter: 2016Q1

REPORT INFORMATION
  Report Type: Spontaneous
  Country: US (occurrence: US)
  Receive Date: 20160209
  Receipt Date: 20160209
  Transmission Date: 20160526
  Serious: No
  Sender: FDA-Public Use
  Company Number: US-GLAXOSMITHKLINE-US2016GSK017071

PATIENT
  Sex: Male

DRUGS (1)
  1. ALBUTEROL. [Suspect]
     Active Substance: ALBUTEROL
     Indication: ASTHMA
     Dosage: UNK
     Dates: start: 2000

REACTIONS (3)
  - Drug ineffective [Unknown]
  - Asthma [Unknown]
  - Emergency care [Unknown]

NARRATIVE: CASE EVENT DATE: 2011
